FAERS Safety Report 11170813 (Version 1)
Quarter: 2015Q2

REPORT INFORMATION
  Report Type: Spontaneous
  Country: US (occurrence: None)
  Receive Date: 20150515
  Receipt Date: 20150515
  Transmission Date: 20150821
  Serious: Yes (Hospitalization)
  Sender: FDA-Public Use
  Company Number: 2014015508

PATIENT
  Age: 50 Year
  Sex: Female
  Weight: 97.5 kg

DRUGS (22)
  1. PROBIOTIC (BIFIDOBACTERIUM LACTIS) [Concomitant]
  2. ASPIRIN (ACETYLSALICYLIC ACID) [Concomitant]
     Active Substance: ASPIRIN
  3. PRAVASTATIN [Concomitant]
     Active Substance: PRAVASTATIN\PRAVASTATIN SODIUM
  4. LISINOPRIL. [Concomitant]
     Active Substance: LISINOPRIL
  5. CHANTIX [Concomitant]
     Active Substance: VARENICLINE TARTRATE
  6. SINGULAIR [Concomitant]
     Active Substance: MONTELUKAST SODIUM
  7. TAMIFLU [Concomitant]
     Active Substance: OSELTAMIVIR PHOSPHATE
  8. LEVOTHYROXINE (LEVOTHYROXINE SODIUM) [Concomitant]
  9. CYMBALTA [Concomitant]
     Active Substance: DULOXETINE HYDROCHLORIDE
  10. CIMZIA [Suspect]
     Active Substance: CERTOLIZUMAB PEGOL
     Indication: CROHN^S DISEASE
     Route: 058
     Dates: start: 20090212, end: 2014
  11. BENTYL (DICYCLOVERINE HYDROCHLORIDE) [Concomitant]
  12. MORPHINE (MORPHINE HYDROCHLORIDE) [Concomitant]
     Active Substance: MORPHINE
  13. INDERAL [Concomitant]
     Active Substance: PROPRANOLOL HYDROCHLORIDE
  14. VICTOZA [Concomitant]
     Active Substance: LIRAGLUTIDE
  15. OXYGEN. [Concomitant]
     Active Substance: OXYGEN
  16. XANAX [Concomitant]
     Active Substance: ALPRAZOLAM
  17. POTASSIUM (POTASSIUM CHLORIDE) [Concomitant]
  18. PREMARIN [Concomitant]
     Active Substance: ESTROGENS, CONJUGATED
  19. ABILIFY [Concomitant]
     Active Substance: ARIPIPRAZOLE
  20. DEXILANT [Concomitant]
     Active Substance: DEXLANSOPRAZOLE
  21. OXYMORPHONE [Concomitant]
     Active Substance: OXYMORPHONE
  22. LASIX [Concomitant]
     Active Substance: FUROSEMIDE

REACTIONS (4)
  - Gastroenteritis [None]
  - Influenza [None]
  - Bursitis [None]
  - Arthralgia [None]

NARRATIVE: CASE EVENT DATE: 201402
